FAERS Safety Report 8862951 (Version 2)
Quarter: 2013Q1

REPORT INFORMATION
  Report Type: Spontaneous
  Country: FR (occurrence: FR)
  Receive Date: 20121026
  Receipt Date: 20130108
  Transmission Date: 20140127
  Serious: Yes (Life-Threatening, Other)
  Sender: FDA-Public Use
  Company Number: FR-BRISTOL-MYERS SQUIBB COMPANY-17046772

PATIENT
  Age: 56 Year
  Sex: Male

DRUGS (13)
  1. ABILIFY [Suspect]
     Indication: DEPRESSION
     Route: 048
     Dates: start: 20120918, end: 20121008
  2. ABILIFY [Suspect]
     Indication: BURNOUT SYNDROME
     Route: 048
     Dates: start: 20120918, end: 20121008
  3. ABILIFY [Suspect]
     Indication: OBSESSIVE-COMPULSIVE PERSONALITY DISORDER
     Route: 048
     Dates: start: 20120918, end: 20121008
  4. ABILIFY [Suspect]
     Indication: BIPOLAR DISORDER
     Route: 048
     Dates: start: 20120918, end: 20121008
  5. TERCIAN [Suspect]
     Indication: ANXIETY
     Dosage: MORNING AND 10 DROPS AND EVENING ALSO TAKEN 50DROPS
     Dates: start: 20120112, end: 20121210
  6. NORSET [Suspect]
     Indication: DEPRESSION
     Dosage: 15 TO 30MG
     Route: 048
     Dates: start: 20120918, end: 20121004
  7. PROZAC [Concomitant]
     Indication: DEPRESSION
  8. EFFEXOR [Concomitant]
     Indication: DEPRESSION
  9. DEROXAT [Concomitant]
     Indication: DEPRESSION
  10. RISPERDAL [Concomitant]
     Indication: DEPRESSION
  11. ZYPREXA [Concomitant]
     Indication: DEPRESSION
  12. ANAFRANIL [Concomitant]
     Indication: DEPRESSION
  13. SEROPRAM [Concomitant]
     Indication: DEPRESSION

REACTIONS (6)
  - Suicide attempt [Recovered/Resolved with Sequelae]
  - Confusional state [Unknown]
  - Anxiety [Unknown]
  - Delusion [Unknown]
  - Hypertriglyceridaemia [Unknown]
  - Hypercholesterolaemia [Unknown]
